FAERS Safety Report 6876123-4 (Version None)
Quarter: 2010Q2

REPORT INFORMATION
  Report Type: 
  Country: None (occurrence: None)
  Receive Date: 20100616
  Receipt Date: 20100405
  Transmission Date: 20101027
  Serious: No
  Sender: FDA-Public Use
  Company Number: DSA_42897_2010

PATIENT
  Sex: Female

DRUGS (6)
  1. XENAZINE [Suspect]
     Indication: TARDIVE DYSKINESIA
     Dosage: (12.5 MG BID ORAL)
     Route: 048
     Dates: start: 20100317, end: 20100320
  2. KLONOPIN [Concomitant]
  3. AMBIEN [Concomitant]
  4. THYROID PREPARATIONS [Concomitant]
  5. ZOCOR [Concomitant]
  6. MACRODANTIN [Concomitant]

REACTIONS (4)
  - ANGER [None]
  - ANXIETY [None]
  - DEPRESSED MOOD [None]
  - TERMINAL INSOMNIA [None]
